FAERS Safety Report 5152392-6 (Version None)
Quarter: 2006Q4

REPORT INFORMATION
  Report Type: 
  Country: None (occurrence: None)
  Receive Date: 20061109
  Receipt Date: 20061031
  Transmission Date: 20070319
  Serious: Yes (Death)
  Sender: FDA-Public Use
  Company Number: CAWYE227613OCT06

PATIENT
  Age: 73 Year
  Sex: Female

DRUGS (2)
  1. PREMARIN [Suspect]
     Dosage: 0.625 MG
     Dates: start: 19740101, end: 20041101
  2. SYNTHROID [Concomitant]

REACTIONS (23)
  - ABDOMINAL PAIN [None]
  - ASTHENIA [None]
  - BACK PAIN [None]
  - BLOOD GLUCOSE INCREASED [None]
  - BODY TEMPERATURE INCREASED [None]
  - BREAST CANCER STAGE I [None]
  - CARDIO-RESPIRATORY ARREST [None]
  - ERYTHEMA [None]
  - HYPERHIDROSIS [None]
  - INTERVERTEBRAL DISC COMPRESSION [None]
  - NAUSEA [None]
  - OESTROGEN RECEPTOR ASSAY POSITIVE [None]
  - OSTEOPOROSIS [None]
  - PETIT MAL EPILEPSY [None]
  - POST PROCEDURAL OEDEMA [None]
  - PROCEDURAL SITE REACTION [None]
  - PROGESTERONE RECEPTOR ASSAY POSITIVE [None]
  - PULMONARY EMBOLISM [None]
  - RENAL CELL CARCINOMA STAGE UNSPECIFIED [None]
  - SKIN DISCOLOURATION [None]
  - SPINAL OSTEOARTHRITIS [None]
  - VENA CAVA THROMBOSIS [None]
  - VOMITING [None]
